FAERS Safety Report 7394685-8 (Version None)
Quarter: 2011Q2

REPORT INFORMATION
  Report Type: 
  Country: None (occurrence: None)
  Receive Date: 20110405
  Receipt Date: 20110324
  Transmission Date: 20111010
  Serious: Yes (Other)
  Sender: FDA-Public Use
  Company Number: US-ASTRAZENECA-2011SE16815

PATIENT
  Age: 55 Year
  Sex: Male
  Weight: 300 kg

DRUGS (15)
  1. HYDROCODONE [Concomitant]
     Indication: PAIN
  2. SOMA [Concomitant]
     Indication: MUSCLE SPASMS
  3. HUMULIN R [Concomitant]
     Indication: BLOOD INSULIN
     Dosage: DAILY
  4. CITAOPRAN [Concomitant]
  5. NORVASC [Concomitant]
  6. SEROQUEL [Suspect]
     Indication: PSYCHOTIC DISORDER
     Route: 048
  7. METOPROLOL SUCCINATE [Concomitant]
     Indication: BLOOD PRESSURE ABNORMAL
  8. TRAZODONE HCL [Concomitant]
     Indication: SUICIDAL IDEATION
  9. HYDROCHLOROTHIAZIDE [Concomitant]
     Indication: FLUID RETENTION
  10. COUMADIN [Concomitant]
     Dosage: 4 MG MWF AND 3.5 MG ALL DAYS
  11. TAMZOPAM [Concomitant]
     Indication: SLEEP DISORDER
  12. LANTUS [Concomitant]
     Indication: DIABETES MELLITUS
  13. DEXILANT [Concomitant]
     Indication: DYSPEPSIA
  14. OMEPRAZOLE [Concomitant]
     Indication: GASTROOESOPHAGEAL REFLUX DISEASE
  15. GLIMEPIRIDE [Concomitant]
     Indication: BLOOD INSULIN

REACTIONS (1)
  - DIVERTICULITIS [None]
